FAERS Safety Report 5262888-4 (Version None)
Quarter: 2007Q1

REPORT INFORMATION
  Report Type: 
  Country: None (occurrence: None)
  Receive Date: 20070312
  Receipt Date: 20070227
  Transmission Date: 20070707
  Serious: Yes (Life-Threatening, Other)
  Sender: FDA-Public Use
  Company Number: 2006GB00933

PATIENT
  Age: 54 Year
  Sex: Male

DRUGS (6)
  1. ATENOLOL [Suspect]
     Indication: SUPRAVENTRICULAR TACHYCARDIA
     Route: 048
     Dates: start: 20060508
  2. ATENOLOL [Suspect]
     Indication: ATRIAL FLUTTER
     Route: 048
     Dates: start: 20060508
  3. AMIODARONE HCL [Suspect]
     Indication: SUPRAVENTRICULAR TACHYCARDIA
     Dosage: LOADING DOSE OF ONE HOUR
     Route: 042
     Dates: start: 20060509, end: 20060509
  4. AMIODARONE HCL [Suspect]
     Indication: ATRIAL FLUTTER
     Dosage: LOADING DOSE OF ONE HOUR
     Route: 042
     Dates: start: 20060509, end: 20060509
  5. LEVOTHYROXINE SODIUM [Concomitant]
     Indication: HYPOTHYROIDISM
     Dates: end: 20060301
  6. LEVOTHYROXINE SODIUM [Concomitant]
     Route: 048
     Dates: start: 20060508

REACTIONS (2)
  - BLOOD PRESSURE IMMEASURABLE [None]
  - DRUG INEFFECTIVE [None]
